FAERS Safety Report 9002958 (Version 2)
Quarter: 2013Q1

REPORT INFORMATION
  Report Type: Spontaneous
  Country: CN (occurrence: CN)
  Receive Date: 20130108
  Receipt Date: 20130117
  Transmission Date: 20140127
  Serious: Yes (Other)
  Sender: FDA-Public Use
  Company Number: CN-PFIZER INC-2013004307

PATIENT
  Age: 58 Year
  Sex: Male
  Weight: 70 kg

DRUGS (3)
  1. MS CONTIN [Suspect]
     Indication: CANCER PAIN
     Dosage: 30 MG, Q12H
     Route: 048
     Dates: start: 20091005
  2. MS CONTIN [Suspect]
     Indication: CHEST PAIN
     Dosage: 60 MG, Q12H
     Route: 048
     Dates: end: 20091015
  3. MS CONTIN [Suspect]
     Indication: METASTATIC PAIN

REACTIONS (3)
  - Delirium [Recovered/Resolved]
  - Personality change [Recovered/Resolved]
  - Somnolence [Recovered/Resolved]
